FAERS Safety Report 21782969 (Version 1)
Quarter: 2022Q4

REPORT INFORMATION
  Report Type: Spontaneous
  Country: IT (occurrence: IT)
  Receive Date: 20221227
  Receipt Date: 20221227
  Transmission Date: 20230112
  Serious: Yes (Hospitalization)
  Sender: FDA-Public Use
  Company Number: IT-LUNDBECK-DKLU3055846

PATIENT
  Age: 74 Year
  Sex: Male

DRUGS (20)
  1. LORAZEPAM [Suspect]
     Active Substance: LORAZEPAM
     Indication: Anxiety
     Dosage: 2.5 MG
  2. LORAZEPAM [Suspect]
     Active Substance: LORAZEPAM
     Indication: Depressed mood
  3. LORAZEPAM [Suspect]
     Active Substance: LORAZEPAM
     Indication: Somatic dysfunction
  4. LORAZEPAM [Suspect]
     Active Substance: LORAZEPAM
     Indication: Feelings of worthlessness
  5. LORAZEPAM [Suspect]
     Active Substance: LORAZEPAM
     Indication: Apathy
  6. CITALOPRAM [Suspect]
     Active Substance: CITALOPRAM HYDROBROMIDE
     Indication: Apathy
     Dosage: 20 MG
  7. CITALOPRAM [Suspect]
     Active Substance: CITALOPRAM HYDROBROMIDE
     Indication: Depressed mood
     Dosage: 30 MG
  8. CITALOPRAM [Suspect]
     Active Substance: CITALOPRAM HYDROBROMIDE
     Indication: Feelings of worthlessness
  9. CITALOPRAM [Suspect]
     Active Substance: CITALOPRAM HYDROBROMIDE
     Indication: Obsessive rumination
  10. CITALOPRAM [Suspect]
     Active Substance: CITALOPRAM HYDROBROMIDE
     Indication: Somatic dysfunction
  11. QUETIAPINE [Suspect]
     Active Substance: QUETIAPINE
     Indication: Somatic dysfunction
     Dosage: 75 MG
  12. QUETIAPINE [Suspect]
     Active Substance: QUETIAPINE
     Indication: Anxiety
     Dosage: 100 MG
  13. QUETIAPINE [Suspect]
     Active Substance: QUETIAPINE
     Indication: Depressed mood
  14. QUETIAPINE [Suspect]
     Active Substance: QUETIAPINE
     Indication: Feelings of worthlessness
  15. QUETIAPINE [Suspect]
     Active Substance: QUETIAPINE
     Indication: Apathy
  16. VORTIOXETINE [Suspect]
     Active Substance: VORTIOXETINE
     Indication: Anxiety
  17. VORTIOXETINE [Suspect]
     Active Substance: VORTIOXETINE
     Indication: Apathy
  18. VORTIOXETINE [Suspect]
     Active Substance: VORTIOXETINE
     Indication: Somatic dysfunction
  19. VORTIOXETINE [Suspect]
     Active Substance: VORTIOXETINE
     Indication: Feelings of worthlessness
  20. VORTIOXETINE [Suspect]
     Active Substance: VORTIOXETINE
     Indication: Depressed mood

REACTIONS (3)
  - Negativism [Recovered/Resolved]
  - Condition aggravated [Recovered/Resolved]
  - Drug ineffective [Unknown]
